FAERS Safety Report 7446123-4 (Version None)
Quarter: 2011Q2

REPORT INFORMATION
  Report Type: 
  Country: None (occurrence: None)
  Receive Date: 20110429
  Receipt Date: 20110419
  Transmission Date: 20111010
  Serious: Yes (Other)
  Sender: FDA-Public Use
  Company Number: A0923808A

PATIENT
  Age: 68 Year
  Sex: Male
  Weight: 56.8 kg

DRUGS (1)
  1. FLOVENT [Suspect]
     Dosage: 1PUFF TWICE PER DAY
     Route: 055

REACTIONS (1)
  - HYPERTENSION [None]
